FAERS Safety Report 8625422-4 (Version None)
Quarter: 2012Q3

REPORT INFORMATION
  Report Type: 
  Country: None (occurrence: None)
  Receive Date: 20120827
  Receipt Date: 20120817
  Transmission Date: 20120928
  Serious: Yes (Hospitalization)
  Sender: FDA-Public Use
  Company Number: CHPA2012US017962

PATIENT
  Age: 68 Year
  Sex: Female

DRUGS (10)
  1. STEROIDS NOS [Suspect]
     Indication: COUGH
     Dosage: UNK, UNK
     Route: 048
     Dates: start: 20110801, end: 20110923
  2. ALLERGY MEDICATION [Suspect]
     Indication: HYPERSENSITIVITY
     Dosage: UNK
  3. PREVACID 24 HR [Suspect]
     Dosage: 15 MG, QD
     Route: 048
  4. LANSOPRAZOLE [Suspect]
     Dosage: UNK, UNK
  5. PREVACID 24 HR [Suspect]
     Indication: GASTROOESOPHAGEAL REFLUX DISEASE
     Dosage: 30 MG, QD
     Route: 048
     Dates: start: 20120601
  6. ALLERGY MEDICATION [Suspect]
     Dosage: UNK, UNK
     Dates: end: 20110501
  7. STEROIDS NOS [Suspect]
     Dosage: UNK, UNK
     Route: 042
  8. DRUG THERAPY NOS [Suspect]
     Indication: BLOOD PRESSURE ABNORMAL
     Dosage: UNK, UNK
  9. PREVACID 24 HR [Suspect]
     Dosage: 30 MG A DAY
     Route: 048
     Dates: start: 20090101, end: 20120501
  10. DRUG THERAPY NOS [Concomitant]

REACTIONS (8)
  - PERTUSSIS [None]
  - DYSPEPSIA [None]
  - DRUG INEFFECTIVE FOR UNAPPROVED INDICATION [None]
  - INCORRECT DRUG ADMINISTRATION DURATION [None]
  - OVERDOSE [None]
  - COUGH [None]
  - FLATULENCE [None]
  - ABDOMINAL DISTENSION [None]
